FAERS Safety Report 23885705 (Version 4)
Quarter: 2024Q3

REPORT INFORMATION
  Report Type: Spontaneous
  Country: US (occurrence: US)
  Receive Date: 20240522
  Receipt Date: 20240923
  Transmission Date: 20241017
  Serious: Yes (Hospitalization, Other)
  Sender: SANOFI AVENTIS
  Company Number: US-SA-SAC00000000286260

PATIENT
  Age: 76 Year
  Sex: Male

DRUGS (1)
  1. KEVZARA [Suspect]
     Active Substance: SARILUMAB
     Indication: Rheumatoid arthritis
     Dosage: 200 MG, QOW
     Route: 058
     Dates: start: 202402, end: 2024

REACTIONS (2)
  - Muscle spasms [Unknown]
  - Spinal nerve stimulator removal [Unknown]

NARRATIVE: CASE EVENT DATE: 20240101
